FAERS Safety Report 15536670 (Version 1)
Quarter: 2018Q4

REPORT INFORMATION
  Report Type: Spontaneous
  Country: ES (occurrence: ES)
  Receive Date: 20181022
  Receipt Date: 20181022
  Transmission Date: 20190205
  Serious: Yes (Other)
  Sender: FDA-Public Use
  Company Number: ES-BAYER-2018-195162

PATIENT
  Age: 28 Year
  Sex: Female
  Weight: 65 kg

DRUGS (1)
  1. YASMIN [Suspect]
     Active Substance: DROSPIRENONE\ETHINYL ESTRADIOL
     Dosage: 1 DF, UNK
     Route: 048
     Dates: start: 20180903

REACTIONS (5)
  - Depressed mood [Recovering/Resolving]
  - Nausea [Not Recovered/Not Resolved]
  - Asthenia [Recovered/Resolved]
  - Constipation [Not Recovered/Not Resolved]
  - Dysmenorrhoea [Recovered/Resolved]

NARRATIVE: CASE EVENT DATE: 20180904
